FAERS Safety Report 7176967-8 (Version None)
Quarter: 2010Q4

REPORT INFORMATION
  Report Type: 
  Country: None (occurrence: None)
  Receive Date: 20101207
  Receipt Date: 20101123
  Transmission Date: 20110411
  Serious: Yes (Death, Hospitalization)
  Sender: FDA-Public Use
  Company Number: DSA_44112_2010

PATIENT
  Sex: Male

DRUGS (18)
  1. ENALAPRIL MALEATE [Suspect]
     Indication: PRODUCT USED FOR UNKNOWN INDICATION
     Dosage: (DF ORAL)
     Route: 048
  2. APIXABAN (APIXABAN) 5 MG [Suspect]
     Indication: THROMBOSIS PROPHYLAXIS
     Dosage: (5 MG QD ORAL)
     Route: 048
     Dates: start: 20090908, end: 20091125
  3. PLACEBO [Suspect]
     Indication: THROMBOSIS PROPHYLAXIS
     Dosage: (ORAL)
     Route: 048
     Dates: start: 20090905, end: 20091125
  4. METFORMIN HCL [Concomitant]
  5. ASPIRIN [Concomitant]
  6. CLOPIDOGREL BISULFATE [Concomitant]
  7. ATORVASTATIN CALCIUM [Concomitant]
  8. LASIX [Concomitant]
  9. AMITRIPTYLINE HCL [Concomitant]
  10. AMLODIPINE [Concomitant]
  11. BISOPROLOL FUMARATE [Concomitant]
  12. PLAVIX [Concomitant]
  13. FUROSEMIDE [Concomitant]
  14. ENALAPRIL MALEATE [Concomitant]
  15. METOLAZONE [Concomitant]
  16. PANTOPRAZOLE [Concomitant]
  17. LANTUS [Concomitant]
  18. HUMALOG [Concomitant]

REACTIONS (4)
  - ACUTE MYOCARDIAL INFARCTION [None]
  - ANGIOEDEMA [None]
  - CORONARY ARTERY DISEASE [None]
  - VENTRICULAR TACHYCARDIA [None]
